FAERS Safety Report 9133297 (Version 1)
Quarter: 2013Q1

REPORT INFORMATION
  Report Type: Spontaneous
  Country: IT (occurrence: IT)
  Receive Date: 20130125
  Receipt Date: 20130125
  Transmission Date: 20140127
  Serious: Yes (Other)
  Sender: FDA-Public Use
  Company Number: IT-B.I. PHARMACEUTICALS,INC./RIDGEFIELD-2013-IT-00038IT

PATIENT
  Age: 9 Year
  Sex: Male
  Weight: 32 kg

DRUGS (2)
  1. IPRATROPIUM BROMIDE [Suspect]
     Dates: start: 20130107, end: 20130114
  2. SALBUTAMOL [Suspect]
     Dates: start: 20130107, end: 20130114

REACTIONS (1)
  - Pupils unequal [Not Recovered/Not Resolved]
